FAERS Safety Report 17370281 (Version 1)
Quarter: 2020Q1

REPORT INFORMATION
  Report Type: Spontaneous
  Country: ES (occurrence: ES)
  Receive Date: 20200205
  Receipt Date: 20200205
  Transmission Date: 20200409
  Serious: Yes (Hospitalization)
  Sender: FDA-Public Use
  Company Number: ES-TEVA-2020-ES-1181411

PATIENT
  Age: 86 Year
  Sex: Female

DRUGS (3)
  1. FLUDARABINA FOSFATO (3698FO) [Suspect]
     Active Substance: FLUDARABINE PHOSPHATE
     Indication: ACUTE LEUKAEMIA
     Dosage: 10 MG
     Route: 042
     Dates: start: 20190708, end: 20190811
  2. CITARABINA (124A) [Suspect]
     Active Substance: CYTARABINE
     Indication: ACUTE LEUKAEMIA
     Dosage: 50 MG
     Route: 042
     Dates: start: 20190708, end: 20190714
  3. ALOPURINOL (318A) [Suspect]
     Active Substance: ALLOPURINOL
     Indication: HYPERURICAEMIA
     Dosage: 300 MG
     Route: 048
     Dates: start: 20190708, end: 20190729

REACTIONS (2)
  - Hepatitis [Recovered/Resolved]
  - Agranulocytosis [Recovered/Resolved]

NARRATIVE: CASE EVENT DATE: 20190726
